FAERS Safety Report 11162299 (Version 1)
Quarter: 2015Q2

REPORT INFORMATION
  Report Type: Spontaneous
  Country: US (occurrence: US)
  Receive Date: 20150604
  Receipt Date: 20150604
  Transmission Date: 20150821
  Serious: No
  Sender: FDA-Public Use
  Company Number: US-SA-2014SA146415

PATIENT
  Age: 81 Year
  Sex: Female

DRUGS (2)
  1. SOLOSTAR [Suspect]
     Active Substance: DEVICE
     Indication: TYPE 2 DIABETES MELLITUS
     Dates: start: 2012
  2. LANTUS SOLOSTAR [Suspect]
     Active Substance: INSULIN GLARGINE
     Indication: TYPE 2 DIABETES MELLITUS
     Dosage: DOSE:20 UNIT(S)
     Route: 065
     Dates: start: 2012

REACTIONS (8)
  - Feeling abnormal [Unknown]
  - Injury associated with device [Unknown]
  - Arthritis [Unknown]
  - Blood glucose increased [Unknown]
  - Presyncope [Unknown]
  - Dysstasia [Unknown]
  - Dysphonia [Unknown]
  - Pain [Unknown]

NARRATIVE: CASE EVENT DATE: 20141020
